FAERS Safety Report 12861178 (Version 1)
Quarter: 2016Q4

REPORT INFORMATION
  Report Type: Spontaneous
  Country: US (occurrence: US)
  Receive Date: 20161019
  Receipt Date: 20161019
  Transmission Date: 20170207
  Serious: Yes (Other)
  Sender: FDA-Public Use
  Company Number: US-CIPLA LTD.-2016US19286

PATIENT

DRUGS (1)
  1. DONEPEZIL. [Suspect]
     Active Substance: DONEPEZIL
     Indication: APHASIA
     Dosage: UNK
     Route: 065

REACTIONS (2)
  - Cognitive disorder [Recovered/Resolved]
  - Diarrhoea [Recovered/Resolved]
